FAERS Safety Report 9435109 (Version 1)
Quarter: 2013Q3

REPORT INFORMATION
  Report Type: Spontaneous
  Country: JP (occurrence: JP)
  Receive Date: 20130801
  Receipt Date: 20130801
  Transmission Date: 20140515
  Serious: Yes (Other)
  Sender: FDA-Public Use
  Company Number: JP-PFIZER INC-2013162329

PATIENT
  Age: 63 Year
  Sex: Male

DRUGS (2)
  1. ZYVOX [Suspect]
     Indication: SEPTIC ARTHRITIS STAPHYLOCOCCAL
     Dosage: 1200 MG DAILY
     Route: 041
     Dates: start: 20101020, end: 20101029
  2. ZYVOX [Suspect]
     Dosage: UNK

REACTIONS (1)
  - Renal impairment [Recovered/Resolved]
